FAERS Safety Report 5900799-9 (Version None)
Quarter: 2008Q3

REPORT INFORMATION
  Report Type: 
  Country: None (occurrence: None)
  Receive Date: 20080929
  Receipt Date: 20080918
  Transmission Date: 20090109
  Serious: Yes (Hospitalization)
  Sender: FDA-Public Use
  Company Number: CA-JNJFOC-20080704086

PATIENT
  Sex: Female
  Weight: 67.13 kg

DRUGS (16)
  1. REMICADE [Suspect]
     Route: 042
  2. REMICADE [Suspect]
     Route: 042
  3. REMICADE [Suspect]
     Route: 042
  4. REMICADE [Suspect]
     Route: 042
  5. REMICADE [Suspect]
     Indication: SPONDYLITIS
     Route: 042
  6. SYNTHROID [Concomitant]
     Dosage: 0.15 - 0.175 ^ALTERNATIVELY^
  7. VITAMIN B-12 [Concomitant]
  8. SULCRATE [Concomitant]
  9. CELEBREX [Concomitant]
     Dosage: 200MG TWICE A DAY X 7 YEARS
  10. OXYCONTIN [Concomitant]
  11. FLEXERIL [Concomitant]
  12. IRON [Concomitant]
  13. GLUCOSAMINE [Concomitant]
  14. LOVAZA [Concomitant]
  15. VITAMIN E [Concomitant]
  16. ASCORBIC ACID [Concomitant]

REACTIONS (1)
  - UTERINE LEIOMYOMA [None]
